FAERS Safety Report 10813534 (Version 4)
Quarter: 2016Q1

REPORT INFORMATION
  Report Type: Spontaneous
  Country: US (occurrence: US)
  Receive Date: 20150218
  Receipt Date: 20160113
  Transmission Date: 20160525
  Serious: No
  Sender: FDA-Public Use
  Company Number: US-PFIZER INC-2015061312

PATIENT
  Sex: Female

DRUGS (10)
  1. HUMIRA [Suspect]
     Active Substance: ADALIMUMAB
  2. ZITHROMAX [Suspect]
     Active Substance: AZITHROMYCIN DIHYDRATE
     Dosage: UNK
  3. CLINDAMYCIN HCL [Suspect]
     Active Substance: CLINDAMYCIN HYDROCHLORIDE
     Dosage: UNK
  4. ENBREL [Suspect]
     Active Substance: ETANERCEPT
     Dosage: UNK
  5. ASPIRIN. [Suspect]
     Active Substance: ASPIRIN
     Dosage: UNK
  6. MORPHINE SULFATE. [Suspect]
     Active Substance: MORPHINE SULFATE
     Dosage: UNK
  7. ACTEMRA [Suspect]
     Active Substance: TOCILIZUMAB
     Dosage: UNK
  8. CEFTIN [Suspect]
     Active Substance: CEFUROXIME AXETIL
     Dosage: UNK
  9. CYMBALTA [Suspect]
     Active Substance: DULOXETINE HYDROCHLORIDE
     Dosage: UNK
  10. CEFUROXIME. [Suspect]
     Active Substance: CEFUROXIME

REACTIONS (2)
  - Drug hypersensitivity [Unknown]
  - Drug effect incomplete [Unknown]
